FAERS Safety Report 9368539 (Version 1)
Quarter: 2013Q2

REPORT INFORMATION
  Report Type: Spontaneous
  Country: US (occurrence: US)
  Receive Date: 20130625
  Receipt Date: 20130625
  Transmission Date: 20140414
  Serious: No
  Sender: FDA-Public Use
  Company Number: US-ASTELLAS-2013US004063

PATIENT
  Age: 35 Year
  Sex: Male
  Weight: 86 kg

DRUGS (5)
  1. VESICARE [Suspect]
     Indication: PROSTATIC DISORDER
     Dosage: 5 MG, UNKNOWN/D
     Route: 048
     Dates: start: 201304
  2. VESICARE [Suspect]
     Indication: MICTURITION URGENCY
     Dosage: 10 MG, UID/QD
     Route: 048
     Dates: start: 20130402, end: 20130409
  3. VESICARE [Suspect]
     Indication: POLLAKIURIA
  4. SULFAMETHOXAZOLE W/TRIMETHOPRIM [Suspect]
     Indication: MICTURITION URGENCY
     Dosage: UNK
     Route: 065
     Dates: start: 201304
  5. SULFAMETHOXAZOLE W/TRIMETHOPRIM [Suspect]
     Indication: POLLAKIURIA

REACTIONS (3)
  - Off label use [Unknown]
  - Dysuria [Unknown]
  - Urine output decreased [Unknown]
